FAERS Safety Report 7061016-2 (Version None)
Quarter: 2010Q4

REPORT INFORMATION
  Report Type: 
  Country: None (occurrence: None)
  Receive Date: 20101026
  Receipt Date: 20101020
  Transmission Date: 20110411
  Serious: Yes (Life-Threatening, Hospitalization, Disabling, Other)
  Sender: FDA-Public Use
  Company Number: JP-PFIZER INC-2010125636

PATIENT
  Age: 19 Year
  Sex: Female
  Weight: 57.1 kg

DRUGS (25)
  1. MEDROL [Suspect]
     Indication: STILL'S DISEASE ADULT ONSET
     Dosage: 20 MG, UNK
     Route: 048
     Dates: start: 20060201
  2. MEDROL [Suspect]
     Dosage: 48 MG, UNK
     Route: 048
     Dates: start: 20060701
  3. MEDROL [Suspect]
     Dosage: 10 MG, UNK
     Route: 048
     Dates: start: 20060701
  4. MEDROL [Suspect]
     Dosage: 12 MG, UNK
     Route: 048
     Dates: start: 20070301
  5. MEDROL [Suspect]
     Dosage: 48 MG, UNK
     Route: 048
     Dates: start: 20070301
  6. MEDROL [Suspect]
     Dosage: 8 MG, UNK
     Route: 048
     Dates: start: 20070301
  7. MEDROL [Suspect]
     Dosage: 8 MG, UNK
     Route: 048
     Dates: start: 20100424
  8. ENBREL [Suspect]
     Indication: STILL'S DISEASE ADULT ONSET
     Dosage: 25 MG, 1X/DAY
     Route: 058
     Dates: start: 20100522, end: 20100605
  9. ENBREL [Suspect]
     Dosage: 25 MG, 2X/DAY
     Route: 058
     Dates: start: 20100612, end: 20100708
  10. ISCOTIN [Suspect]
     Indication: PROPHYLAXIS
     Dosage: 100 MG, 3X/DAY
     Route: 048
     Dates: start: 20100522, end: 20100801
  11. METHOTREXATE [Suspect]
     Indication: STILL'S DISEASE ADULT ONSET
     Dosage: 5 MG, WEEKLY
     Route: 048
     Dates: start: 20060701, end: 20060904
  12. METHOTREXATE [Suspect]
     Dosage: 20 MG, WEEKLY
     Route: 048
     Dates: start: 20070307, end: 20100710
  13. METHOTREXATE [Suspect]
     Dosage: 5 MG, WEEKLY
     Route: 048
     Dates: start: 20100824
  14. METHOTREXATE [Suspect]
     Dosage: 5 MG, WEEKLY
     Route: 048
     Dates: start: 20060828, end: 20060904
  15. METHOTREXATE [Suspect]
     Dosage: 7.5 MG, WEEKLY
     Route: 048
     Dates: start: 20060911
  16. METHOTREXATE [Suspect]
     Dosage: 12.5 MG, WEEKLY
     Route: 048
     Dates: start: 20060925
  17. METHOTREXATE [Suspect]
     Dosage: 15 MG, WEEKLY
     Route: 048
     Dates: start: 20061002
  18. METHOTREXATE [Suspect]
     Dosage: 20 MG, WEEKLY
     Route: 048
     Dates: start: 20070307, end: 20100710
  19. SOL-MELCORT [Concomitant]
     Indication: ARTHRALGIA
     Dosage: 40 MG, 1X/DAY
     Route: 042
     Dates: start: 20100424, end: 20100424
  20. SOLDEM 1 [Concomitant]
     Dosage: 500 ML, 1X/DAY
     Route: 042
     Dates: start: 20100710, end: 20100724
  21. TRANEXAMIC ACID [Concomitant]
     Indication: HAEMORRHAGE SUBCUTANEOUS
     Dosage: 250 MG, 1X/DAY
     Route: 042
     Dates: start: 20100710, end: 20100716
  22. VITAMEDIN INTRAVENOUS [Concomitant]
     Indication: FLUID REPLACEMENT
     Dosage: 1 DF, UNK
     Route: 042
     Dates: start: 20100710, end: 20100724
  23. CHICHINA [Concomitant]
     Indication: HAEMORRHAGE SUBCUTANEOUS
     Dosage: 100 MG, UNK
     Route: 042
     Dates: start: 20100710, end: 20100716
  24. SOLU-MEDROL [Concomitant]
     Dosage: UNK
     Dates: start: 20070301
  25. PREDNISOLONE [Concomitant]
     Dosage: UNK
     Dates: start: 20060201

REACTIONS (8)
  - CALCULUS URINARY [None]
  - ERYTHEMA MULTIFORME [None]
  - HAEMORRHAGE SUBCUTANEOUS [None]
  - HEPATITIS ACUTE [None]
  - MOUTH ULCERATION [None]
  - PLEURISY [None]
  - RASH [None]
  - SPINAL FRACTURE [None]
